FAERS Safety Report 13304237 (Version 1)
Quarter: 2017Q1

REPORT INFORMATION
  Report Type: Spontaneous
  Country: NL (occurrence: NL)
  Receive Date: 20170308
  Receipt Date: 20170308
  Transmission Date: 20170428
  Serious: Yes (Hospitalization)
  Sender: FDA-Public Use
  Company Number: NL-CONCORDIA PHARMACEUTICALS INC.-GSH201703-001485

PATIENT
  Age: 66 Year
  Sex: Female

DRUGS (11)
  1. HYDROXYCHLOROQUINE 200 MG TABLET [Suspect]
     Active Substance: HYDROXYCHLOROQUINE
     Indication: OSTEOARTHRITIS
     Route: 048
     Dates: start: 20170102, end: 20170120
  2. ESTRIOL [Concomitant]
     Active Substance: ESTRIOL
  3. CHLORAMPHENICOL [Concomitant]
     Active Substance: CHLORAMPHENICOL
  4. PANTOPRAZOLE [Concomitant]
     Active Substance: PANTOPRAZOLE SODIUM
  5. EUTHYROX [Concomitant]
     Active Substance: LEVOTHYROXINE SODIUM
  6. MOMETASONE [Concomitant]
     Active Substance: MOMETASONE
  7. OCULOTECT [Concomitant]
  8. VASELINE PURE [Concomitant]
     Active Substance: PETROLATUM
  9. MIZOLASTINE [Concomitant]
     Active Substance: MIZOLASTINE
  10. MONTELUKAST [Concomitant]
     Active Substance: MONTELUKAST SODIUM
  11. CARBOMER [Concomitant]
     Active Substance: CARBOMER

REACTIONS (4)
  - Acute generalised exanthematous pustulosis [Recovering/Resolving]
  - Pyrexia [Recovering/Resolving]
  - Chills [Recovering/Resolving]
  - Rash [Recovering/Resolving]

NARRATIVE: CASE EVENT DATE: 20170119
